FAERS Safety Report 10680162 (Version 3)
Quarter: 2015Q4

REPORT INFORMATION
  Report Type: Spontaneous
  Country: BG (occurrence: BG)
  Receive Date: 20141229
  Receipt Date: 20151209
  Transmission Date: 20160304
  Serious: Yes (Hospitalization)
  Sender: FDA-Public Use
  Company Number: PHHY2014BG167377

PATIENT
  Age: 45 Year
  Sex: Female

DRUGS (1)
  1. METHOTREXATE (METHOTREXATE SODIUM) [Suspect]
     Active Substance: METHOTREXATE SODIUM
     Indication: PSORIASIS
     Dosage: 7.5 MG, QD (52.5 MG TOTAL)
     Route: 048

REACTIONS (6)
  - Gastritis [Recovered/Resolved]
  - Incorrect drug administration rate [Recovered/Resolved]
  - Pharyngitis [Recovered/Resolved]
  - Overdose [Recovered/Resolved]
  - Stomatitis [Recovered/Resolved]
  - Circumstance or information capable of leading to medication error [Recovered/Resolved]
